FAERS Safety Report 23591886 (Version 3)
Quarter: 2024Q1

REPORT INFORMATION
  Report Type: Spontaneous
  Country: US (occurrence: US)
  Receive Date: 20240304
  Receipt Date: 20240319
  Transmission Date: 20240410
  Serious: Yes (Other)
  Sender: FDA-Public Use
  Company Number: US-BRISTOL-MYERS SQUIBB COMPANY-2024-034494

PATIENT
  Age: 80 Year
  Sex: Male

DRUGS (1)
  1. LENALIDOMIDE [Suspect]
     Active Substance: LENALIDOMIDE
     Indication: Blood test abnormal
     Dosage: FREQUENCY: TAKE 1 CAPSULE BY MOUTH EVERY DAY FOR 21 DAYS AND THEN TAKE 7 DAYS OFF
     Route: 048
     Dates: start: 20240220

REACTIONS (5)
  - Abdominal pain upper [Not Recovered/Not Resolved]
  - Asthenia [Not Recovered/Not Resolved]
  - Off label use [Unknown]
  - Constipation [Not Recovered/Not Resolved]
  - Platelet count decreased [Not Recovered/Not Resolved]
